FAERS Safety Report 9758187 (Version 1)
Quarter: 2013Q4

REPORT INFORMATION
  Report Type: Spontaneous
  Country: US (occurrence: US)
  Receive Date: 20131216
  Receipt Date: 20131216
  Transmission Date: 20140711
  Serious: No
  Sender: FDA-Public Use
  Company Number: US-TEVA-412986USA

PATIENT
  Age: 22 Year
  Sex: Female
  Weight: 57.2 kg

DRUGS (5)
  1. PARAGARD 380A [Suspect]
     Indication: CONTRACEPTION
     Route: 015
     Dates: start: 20130509, end: 20130604
  2. DAYTRANA [Concomitant]
     Indication: ATTENTION DEFICIT/HYPERACTIVITY DISORDER
  3. CITALOPRAM [Concomitant]
  4. INTUNIV [Concomitant]
  5. SPIRONOLACTONE [Concomitant]
     Indication: POLYCYSTIC OVARIES

REACTIONS (1)
  - Device expulsion [Recovered/Resolved]
